FAERS Safety Report 26153271 (Version 1)
Quarter: 2025Q4

REPORT INFORMATION
  Report Type: Report from Study
  Country: CA (occurrence: CA)
  Receive Date: 20251214
  Receipt Date: 20251214
  Transmission Date: 20260117
  Serious: Yes (Death, Other)
  Sender: ALEXION PHARMACEUTICALS
  Company Number: CA-AstraZeneca-CH-01011612A

PATIENT
  Sex: Female

DRUGS (2)
  1. RAVULIZUMAB [Suspect]
     Active Substance: RAVULIZUMAB
     Indication: Atypical haemolytic uraemic syndrome
     Dosage: 600 MILLIGRAM, 1 DOSE
  2. RAVULIZUMAB [Suspect]
     Active Substance: RAVULIZUMAB
     Dosage: 300 MILLIGRAM, 2 WEEKS AFTER LOADING DOSE

REACTIONS (1)
  - Hepatic failure [Fatal]
